FAERS Safety Report 8565359-2 (Version None)
Quarter: 2012Q3

REPORT INFORMATION
  Report Type: 
  Country: None (occurrence: None)
  Receive Date: 20120803
  Receipt Date: 20120723
  Transmission Date: 20120928
  Serious: Yes (Other)
  Sender: FDA-Public Use
  Company Number: US-ROCHE-1096113

PATIENT

DRUGS (4)
  1. HERCEPTIN [Suspect]
     Route: 042
  2. INVESTIGATIONAL ANTINEOPLASTIC AGENT [Suspect]
     Indication: NEOPLASM
     Dosage: COHORT 2
  3. HERCEPTIN [Suspect]
     Indication: NEOPLASM
     Dosage: LOADING DOSE
     Route: 042
  4. INVESTIGATIONAL ANTINEOPLASTIC AGENT [Suspect]
     Dosage: COHORT 2 AT REDUCED DOSE

REACTIONS (1)
  - KERATITIS [None]
